FAERS Safety Report 11719056 (Version 2)
Quarter: 2015Q4

REPORT INFORMATION
  Report Type: Report from Study
  Country: US (occurrence: US)
  Receive Date: 20151110
  Receipt Date: 20151110
  Transmission Date: 20160304
  Serious: Yes (Hospitalization)
  Sender: FDA-Public Use
  Company Number: US-BAYER-2015-446456

PATIENT
  Age: 65 Year
  Sex: Male

DRUGS (2)
  1. STIVARGA [Suspect]
     Active Substance: REGORAFENIB
     Indication: COLORECTAL CANCER METASTATIC
     Dosage: 160 MG DAILY 4 (40 MG)
     Route: 048
     Dates: start: 20151016, end: 20151022
  2. STIVARGA [Suspect]
     Active Substance: REGORAFENIB
     Indication: COLORECTAL CANCER METASTATIC
     Dosage: 120 MG DAILY (3 (40 MG)
     Route: 048
     Dates: start: 20151009, end: 20151015

REACTIONS (8)
  - Erythema [None]
  - Off label use [None]
  - Gait disturbance [None]
  - Pain in extremity [None]
  - Fatigue [None]
  - Decreased appetite [None]
  - Blister [Not Recovered/Not Resolved]
  - Dysphonia [None]

NARRATIVE: CASE EVENT DATE: 201510
